FAERS Safety Report 5719713-4 (Version None)
Quarter: 2008Q2

REPORT INFORMATION
  Report Type: 
  Country: None (occurrence: None)
  Receive Date: 20080428
  Receipt Date: 20070410
  Transmission Date: 20081010
  Serious: No
  Sender: FDA-Public Use
  Company Number: A0646861A

PATIENT
  Sex: Female

DRUGS (1)
  1. ZOFRAN [Suspect]
     Route: 065

REACTIONS (3)
  - DRUG EXPOSURE DURING PREGNANCY [None]
  - DRUG INEFFECTIVE [None]
  - VOMITING [None]
